FAERS Safety Report 9733850 (Version 2)
Quarter: 2013Q4

REPORT INFORMATION
  Report Type: Spontaneous
  Country: IN (occurrence: IN)
  Receive Date: 20131205
  Receipt Date: 20131205
  Transmission Date: 20140711
  Serious: Yes (Hospitalization, Other)
  Sender: FDA-Public Use
  Company Number: IN-BAXTER-2013BAX045135

PATIENT
  Age: 52 Year
  Sex: Female

DRUGS (2)
  1. DIANEAL PD-2 PERITONEAL DIALISIS SOLUTION ULTRABAG WITH 2.5% DEXTROSE [Suspect]
     Indication: PERITONEAL DIALYSIS
     Route: 033
  2. EXTRANEAL PERITONEAL DALYSIS SOLUTION WITH ICODEXTRIN 7.5% [Suspect]
     Indication: PERITONEAL DIALYSIS
     Route: 033

REACTIONS (3)
  - Haemoglobin decreased [Unknown]
  - Peritonitis bacterial [Recovering/Resolving]
  - Back pain [Unknown]
